FAERS Safety Report 6491287-2 (Version None)
Quarter: 2009Q4

REPORT INFORMATION
  Report Type: 
  Country: None (occurrence: None)
  Receive Date: 20091211
  Receipt Date: 20091207
  Transmission Date: 20100525
  Serious: Yes (Death, Hospitalization)
  Sender: FDA-Public Use
  Company Number: PHHO2009US15141

PATIENT
  Sex: Female

DRUGS (14)
  1. CYCLOSPORINE [Suspect]
     Indication: RENAL TRANSPLANT
     Dosage: 100 MG, QD
     Route: 048
  2. PREDNISONE [Suspect]
     Indication: RENAL TRANSPLANT
  3. CELLCEPT [Suspect]
  4. ADVAIR DISKUS 100/50 [Concomitant]
  5. FLUNISOLIDE [Concomitant]
  6. HEPARIN [Concomitant]
  7. HYDRALAZINE HCL [Concomitant]
  8. ISOSORBIDE [Concomitant]
  9. LEVOTHYROXINE SODIUM [Concomitant]
  10. METOPROLOL [Concomitant]
  11. OMEPRAZOLE [Concomitant]
  12. SODIUM BICARBONATE IN PLASTIC CONTAINER [Concomitant]
  13. SPIRIVA [Concomitant]
  14. VALCYTE [Concomitant]

REACTIONS (11)
  - ATRIAL FIBRILLATION [None]
  - CONFUSIONAL STATE [None]
  - DIABETIC KETOACIDOSIS [None]
  - EPSTEIN-BARR VIRUS ASSOCIATED LYMPHOPROLIFERATIVE DISORDER [None]
  - FLUID OVERLOAD [None]
  - HEPATITIS [None]
  - LEUKOCYTOSIS [None]
  - MENTAL STATUS CHANGES [None]
  - RENAL FAILURE ACUTE [None]
  - SEPSIS [None]
  - TRANSPLANT FAILURE [None]
